FAERS Safety Report 18391764 (Version 1)
Quarter: 2020Q4

REPORT INFORMATION
  Report Type: Spontaneous
  Country: US (occurrence: US)
  Receive Date: 20201015
  Receipt Date: 20201015
  Transmission Date: 20210114
  Serious: Yes (Disabling)
  Sender: FDA-Public Use
  Company Number: None

PATIENT
  Age: 31 Year
  Sex: Female
  Weight: 56.7 kg

DRUGS (1)
  1. PARAGARD T 380A [Suspect]
     Active Substance: COPPER
     Dates: start: 20171201

REACTIONS (5)
  - Infertility [None]
  - Complication associated with device [None]
  - Pelvic inflammatory disease [None]
  - Sepsis [None]
  - Uterine perforation [None]

NARRATIVE: CASE EVENT DATE: 20190404
